FAERS Safety Report 7352006-0 (Version None)
Quarter: 2011Q1

REPORT INFORMATION
  Report Type: 
  Country: None (occurrence: None)
  Receive Date: 20110315
  Receipt Date: 20110310
  Transmission Date: 20110831
  Serious: Yes (Hospitalization, Other)
  Sender: FDA-Public Use
  Company Number: US-PFIZER INC-2011053843

PATIENT
  Sex: Male
  Weight: 61.7 kg

DRUGS (16)
  1. LEVITRA [Concomitant]
     Dosage: UNK
  2. ADVIL LIQUI-GELS [Concomitant]
     Dosage: UNK
  3. CISPLATIN [Concomitant]
     Dosage: UNK
  4. FLONASE [Concomitant]
     Dosage: UNK
  5. TOPROL-XL [Concomitant]
     Dosage: UNK
  6. AMLODIPINE [Concomitant]
     Dosage: UNK
  7. MSIR [Concomitant]
     Dosage: UNK
  8. MAGNESIUM [Concomitant]
     Dosage: UNK
  9. LOVENOX [Concomitant]
     Dosage: UNK
  10. MEGACE [Concomitant]
     Dosage: UNK
  11. CAMPTOSAR [Suspect]
     Indication: OESOPHAGEAL CANCER METASTATIC
     Dosage: 100 MG, ONCE A WEEK
     Route: 042
     Dates: start: 20101222, end: 20110216
  12. OMEPRAZOLE [Concomitant]
     Dosage: UNK
  13. EMEND [Concomitant]
     Dosage: UNK
  14. ZOFRAN [Concomitant]
     Dosage: UNK
  15. ZESTRIL [Concomitant]
     Dosage: UNK
  16. COUMADIN [Concomitant]
     Dosage: UNK

REACTIONS (2)
  - ABDOMINAL PAIN [None]
  - PANCREATITIS [None]
